FAERS Safety Report 8494973-8 (Version None)
Quarter: 2012Q3

REPORT INFORMATION
  Report Type: 
  Country: None (occurrence: None)
  Receive Date: 20120709
  Receipt Date: 20120627
  Transmission Date: 20120928
  Serious: Yes (Hospitalization)
  Sender: FDA-Public Use
  Company Number: FR-BRISTOL-MYERS SQUIBB COMPANY-16724932

PATIENT
  Age: 49 Year
  Sex: Male

DRUGS (1)
  1. KENACORT [Suspect]
     Indication: SEASONAL ALLERGY
     Dates: start: 20120401

REACTIONS (2)
  - INJECTION SITE NECROSIS [None]
  - SUBCUTANEOUS ABSCESS [None]
